FAERS Safety Report 11787547 (Version 1)
Quarter: 2015Q4

REPORT INFORMATION
  Report Type: Spontaneous
  Country: US (occurrence: US)
  Receive Date: 20151130
  Receipt Date: 20151130
  Transmission Date: 20160305
  Serious: Yes (Other)
  Sender: FDA-Public Use
  Company Number: US-TEVA-612096USA

PATIENT
  Sex: Female

DRUGS (1)
  1. COPAXONE [Suspect]
     Active Substance: GLATIRAMER ACETATE
     Route: 065

REACTIONS (7)
  - Multiple sclerosis relapse [Unknown]
  - Muscular weakness [Unknown]
  - Burning sensation [Not Recovered/Not Resolved]
  - Bladder disorder [Unknown]
  - Sleep phase rhythm disturbance [Not Recovered/Not Resolved]
  - Eye disorder [Unknown]
  - Pain in extremity [Not Recovered/Not Resolved]

NARRATIVE: CASE EVENT DATE: 201511
